FAERS Safety Report 17160581 (Version 3)
Quarter: 2019Q4

REPORT INFORMATION
  Report Type: Spontaneous
  Country: SE (occurrence: SE)
  Receive Date: 20191216
  Receipt Date: 20191226
  Transmission Date: 20200122
  Serious: Yes (Hospitalization, Other)
  Sender: FDA-Public Use
  Company Number: SE-PFIZER INC-2019536197

PATIENT
  Age: 41 Year
  Sex: Female

DRUGS (3)
  1. PROPAVAN [Suspect]
     Active Substance: PROPIOMAZINE
     Dosage: 200 MG, UNK
     Route: 048
     Dates: start: 20180917, end: 20180917
  2. LYRICA [Suspect]
     Active Substance: PREGABALIN
     Dosage: 1050 MG, UNK
     Route: 048
     Dates: start: 20180917, end: 20180917
  3. DICLOFENAC [Suspect]
     Active Substance: DICLOFENAC
     Dosage: 3 DF, UNK (3 ST)
     Route: 048
     Dates: start: 20180917, end: 20180917

REACTIONS (2)
  - Intentional overdose [Unknown]
  - Intentional self-injury [Unknown]

NARRATIVE: CASE EVENT DATE: 20180917
